FAERS Safety Report 19847204 (Version 1)
Quarter: 2021Q3

REPORT INFORMATION
  Report Type: Report from Study
  Country: US (occurrence: US)
  Receive Date: 20210917
  Receipt Date: 20210917
  Transmission Date: 20211014
  Serious: Yes (Hospitalization)
  Sender: FDA-Public Use
  Company Number: US-TAKEDA-US201920775

PATIENT
  Age: 49 Year
  Sex: Female
  Weight: 61 kg

DRUGS (8)
  1. LANADELUMAB [Suspect]
     Active Substance: LANADELUMAB
     Dosage: 300 MILLIGRAM, Q2WEEKS
     Route: 058
     Dates: start: 20210325
  2. LANADELUMAB [Suspect]
     Active Substance: LANADELUMAB
     Indication: IMMUNE SYSTEM DISORDER
     Dosage: 300 MILIGRAM, OTHER
     Route: 058
     Dates: start: 2018
  3. LANADELUMAB [Suspect]
     Active Substance: LANADELUMAB
     Dosage: 300 MILLIGRAM, Q2WEEKS
     Route: 058
     Dates: start: 20190622
  4. ICATIBANT [Concomitant]
     Active Substance: ICATIBANT ACETATE
     Route: 065
  5. ADDERALL [Concomitant]
     Active Substance: AMPHETAMINE ASPARTATE\AMPHETAMINE SULFATE\DEXTROAMPHETAMINE SACCHARATE\DEXTROAMPHETAMINE SULFATE
     Route: 065
  6. LUNESTA [Concomitant]
     Active Substance: ESZOPICLONE
     Route: 065
  7. OLANZAPINE. [Concomitant]
     Active Substance: OLANZAPINE
     Route: 065
  8. MULTIVITAMIN [Concomitant]
     Active Substance: VITAMINS
     Route: 065

REACTIONS (3)
  - Dyspnoea [Recovered/Resolved]
  - Hip arthroplasty [Unknown]
  - Product dose omission issue [Unknown]

NARRATIVE: CASE EVENT DATE: 20190622
